FAERS Safety Report 8785820 (Version 1)
Quarter: 2012Q4

REPORT INFORMATION
  Report Type: 
  Country: US (occurrence: US)
  Receive Date: 20120914
  Receipt Date: 20120914
  Transmission Date: 20130627
  Serious: No
  Sender: FDA-Public Use
  Company Number: US-MYLANLABS-2012S1012115

PATIENT
  Age: 50 Year
  Sex: Male

DRUGS (8)
  1. CLOPIDOGREL TABLETS USP [Suspect]
     Indication: MYOCARDIAL INFARCTION
     Route: 048
     Dates: start: 201206
  2. CRESTOR [Concomitant]
     Indication: BLOOD TRIGLYCERIDES INCREASED
  3. TRILIPIX [Concomitant]
     Indication: BLOOD TRIGLYCERIDES INCREASED
  4. LISINOPRIL [Concomitant]
     Indication: BLOOD PRESSURE INCREASED
  5. ATENOLOL [Concomitant]
     Indication: BLOOD PRESSURE INCREASED
  6. ASPIRIN [Concomitant]
     Indication: MYOCARDIAL INFARCTION
  7. LANTUS [Concomitant]
     Indication: DIABETES MELLITUS
  8. NOVOLOG [Concomitant]
     Indication: DIABETES MELLITUS

REACTIONS (1)
  - Nightmare [Not Recovered/Not Resolved]
